FAERS Safety Report 10405317 (Version 1)
Quarter: 2014Q3

REPORT INFORMATION
  Report Type: Spontaneous
  Country: US (occurrence: US)
  Receive Date: 20140825
  Receipt Date: 20140825
  Transmission Date: 20150326
  Serious: Yes (Other)
  Sender: FDA-Public Use
  Company Number: US-JNJFOC-20140819767

PATIENT

DRUGS (4)
  1. TH-302 [Suspect]
     Active Substance: EVOFOSFAMIDE
     Indication: SARCOMA
     Route: 042
  2. G-CSF [Concomitant]
     Active Substance: FILGRASTIM
     Indication: PROPHYLAXIS
     Route: 065
  3. DOXORUBICIN [Suspect]
     Active Substance: DOXORUBICIN
     Indication: SARCOMA
     Dosage: ON DAY 1 (2 H AFTERTH-302)
     Route: 040
  4. TH-302 [Suspect]
     Active Substance: EVOFOSFAMIDE
     Indication: SARCOMA
     Dosage: DAYS 1 AND 8
     Route: 042

REACTIONS (4)
  - Wrong technique in drug usage process [Unknown]
  - Necrotising fasciitis [Unknown]
  - Perirectal abscess [Unknown]
  - Off label use [Unknown]
